FAERS Safety Report 9682505 (Version 1)
Quarter: 2013Q4

REPORT INFORMATION
  Report Type: Other
  Country: US (occurrence: US)
  Receive Date: 20131112
  Receipt Date: 20131112
  Transmission Date: 20140711
  Serious: Yes (Other)
  Sender: FDA-Public Use
  Company Number: US-SHIRE-ALL1-2013-07620

PATIENT
  Sex: Male

DRUGS (1)
  1. ELAPRASE [Suspect]
     Indication: MUCOPOLYSACCHARIDOSIS II
     Dosage: 18 MG, (3 VIALS) 1X/WEEK
     Route: 041
     Dates: start: 20080807

REACTIONS (2)
  - Respiratory tract congestion [Not Recovered/Not Resolved]
  - Malaise [Unknown]
